FAERS Safety Report 15560417 (Version 2)
Quarter: 2018Q4

REPORT INFORMATION
  Report Type: Report from Study
  Country: None (occurrence: GB)
  Receive Date: 20181029
  Receipt Date: 20181108
  Transmission Date: 20190205
  Serious: Yes (Hospitalization)
  Sender: FDA-Public Use
  Company Number: GB-ABBVIE-18S-167-2531224-00

PATIENT
  Age: 77 Year
  Sex: Male

DRUGS (1)
  1. DUODOPA [Suspect]
     Active Substance: CARBIDOPA\LEVODOPA
     Indication: PARKINSON^S DISEASE
     Route: 050

REACTIONS (8)
  - Weight decreased [Unknown]
  - Psychomotor hyperactivity [Unknown]
  - Tremor [Unknown]
  - Dystonia [Unknown]
  - Poor quality sleep [Unknown]
  - Device dislocation [Unknown]
  - Abnormal dreams [Unknown]
  - Bedridden [Unknown]

NARRATIVE: CASE EVENT DATE: 20181018
